FAERS Safety Report 5336579-5 (Version None)
Quarter: 2007Q2

REPORT INFORMATION
  Report Type: 
  Country: None (occurrence: None)
  Receive Date: 20070529
  Receipt Date: 20070517
  Transmission Date: 20071010
  Serious: Yes (Life-Threatening, Hospitalization, Disabling)
  Sender: FDA-Public Use
  Company Number: GB-AMGEN-US226202

PATIENT
  Age: 43 Year
  Sex: Female
  Weight: 67 kg

DRUGS (3)
  1. ENBREL [Suspect]
     Indication: RHEUMATOID ARTHRITIS
     Route: 058
     Dates: start: 20060323, end: 20070122
  2. CELECOXIB [Concomitant]
     Indication: RHEUMATOID ARTHRITIS
     Route: 048
     Dates: start: 20030101
  3. AZATHIOPRINE [Concomitant]
     Indication: RHEUMATOID ARTHRITIS
     Route: 048
     Dates: start: 20060322

REACTIONS (5)
  - LIVEDO RETICULARIS [None]
  - MONONEUROPATHY MULTIPLEX [None]
  - MYOSITIS [None]
  - PROTEINURIA [None]
  - VASCULITIS [None]
